FAERS Safety Report 9348502 (Version 2)
Quarter: 2013Q3

REPORT INFORMATION
  Report Type: Spontaneous
  Country: IT (occurrence: IT)
  Receive Date: 20130614
  Receipt Date: 20130725
  Transmission Date: 20140515
  Serious: Yes (Hospitalization)
  Sender: FDA-Public Use
  Company Number: IT-SANOFI-AVENTIS-2013SA058457

PATIENT
  Age: 82 Year
  Sex: Female

DRUGS (1)
  1. TRENTAL [Suspect]
     Indication: CYANOSIS
     Route: 048
     Dates: start: 20130415, end: 20130415

REACTIONS (4)
  - Dyspepsia [Recovered/Resolved]
  - Hyperhidrosis [Recovered/Resolved]
  - Vomiting [Recovered/Resolved]
  - Haematemesis [Recovered/Resolved]
